FAERS Safety Report 5795286-5 (Version None)
Quarter: 2008Q2

REPORT INFORMATION
  Report Type: 
  Country: None (occurrence: None)
  Receive Date: 20080630
  Receipt Date: 20080616
  Transmission Date: 20081010
  Serious: Yes (Hospitalization)
  Sender: FDA-Public Use
  Company Number: US-ELI_LILLY_AND_COMPANY-US200806003422

PATIENT
  Sex: Female

DRUGS (8)
  1. FORTEO [Suspect]
     Indication: PELVIC FRACTURE
     Dates: start: 20080101
  2. CALCIUM [Concomitant]
     Dosage: 1500 MG, DAILY (1/D)
  3. VITAMIN D [Concomitant]
     Dosage: 1000 IU, UNK
  4. PREDNISONE [Concomitant]
     Indication: POLYMYALGIA RHEUMATICA
     Dosage: 20 MG, UNK
     Dates: start: 20070101
  5. PREDNISONE [Concomitant]
     Dosage: 5 MG, UNK
  6. PREDNISONE [Concomitant]
     Dosage: 20 MG, UNK
  7. PREDNISONE [Concomitant]
     Dosage: 5 MG, UNK
  8. ADVAIR DISKUS 100/50 [Concomitant]

REACTIONS (2)
  - HEART RATE IRREGULAR [None]
  - MYOCARDIAL INFARCTION [None]
